FAERS Safety Report 7105293-8 (Version None)
Quarter: 2010Q4

REPORT INFORMATION
  Report Type: 
  Country: None (occurrence: None)
  Receive Date: 20101116
  Receipt Date: 20101103
  Transmission Date: 20110411
  Serious: Yes (Hospitalization)
  Sender: FDA-Public Use
  Company Number: US-ELI_LILLY_AND_COMPANY-US201011001562

PATIENT
  Sex: Female

DRUGS (4)
  1. FORTEO [Suspect]
     Indication: OSTEOPOROSIS
     Dosage: 20 UG, DAILY (1/D)
     Route: 058
  2. GABAPENTIN [Concomitant]
  3. OXYCONTIN [Concomitant]
     Dosage: 2 D/F, DAILY (1/D)
  4. VITAMINS [Concomitant]

REACTIONS (5)
  - MUSCULOSKELETAL DISCOMFORT [None]
  - OEDEMA PERIPHERAL [None]
  - PAIN [None]
  - SPINAL LAMINECTOMY [None]
  - WEIGHT INCREASED [None]
